FAERS Safety Report 9630612 (Version 1)
Quarter: 2013Q4

REPORT INFORMATION
  Report Type: Spontaneous
  Country: DE (occurrence: None)
  Receive Date: 20131015
  Receipt Date: 20131015
  Transmission Date: 20140711
  Serious: Yes (Disabling, Other)
  Sender: FDA-Public Use
  Company Number: 2013P1019902

PATIENT
  Age: 7 Year
  Sex: Female

DRUGS (1)
  1. ISONIAZID [Suspect]
     Indication: TUBERCULOSIS
     Route: 048

REACTIONS (10)
  - Vision blurred [None]
  - Anterior chamber inflammation [None]
  - Swelling [None]
  - Cystoid macular oedema [None]
  - Periphlebitis [None]
  - Device leakage [None]
  - Jarisch-Herxheimer reaction [None]
  - Paradoxical drug reaction [None]
  - Visual acuity reduced [None]
  - Optic disc disorder [None]
